FAERS Safety Report 22794460 (Version 2)
Quarter: 2023Q4

REPORT INFORMATION
  Report Type: Report from Study
  Country: CO (occurrence: CO)
  Receive Date: 20230807
  Receipt Date: 20231106
  Transmission Date: 20240110
  Serious: Yes (Hospitalization)
  Sender: FDA-Public Use
  Company Number: CO-002147023-NVSC2023CO164284

PATIENT

DRUGS (3)
  1. RUXOLITINIB [Suspect]
     Active Substance: RUXOLITINIB
     Indication: Myelofibrosis
     Dosage: 20 MG, Q12H (START DATE- APPROXIMATELY 5 YEARS AGO)
     Route: 048
  2. RUXOLITINIB [Suspect]
     Active Substance: RUXOLITINIB
     Dosage: UNK
     Route: 048
     Dates: end: 20230911
  3. INALER [Concomitant]
     Indication: Product used for unknown indication
     Dosage: UNK
     Route: 065

REACTIONS (6)
  - Fall [Unknown]
  - Oxygen saturation decreased [Unknown]
  - Hip fracture [Unknown]
  - Head injury [Unknown]
  - Arthralgia [Unknown]
  - Gastritis [Unknown]

NARRATIVE: CASE EVENT DATE: 20230701
